FAERS Safety Report 9802904 (Version 1)
Quarter: 2014Q1

REPORT INFORMATION
  Report Type: Spontaneous
  Country: GB (occurrence: None)
  Receive Date: 20140102
  Receipt Date: 20140102
  Transmission Date: 20141002
  Serious: Yes (Life-Threatening, Hospitalization, Other)
  Sender: FDA-Public Use
  Company Number: AUR-APL-2013-10897

PATIENT
  Age: 26 Year
  Sex: Female

DRUGS (2)
  1. FLUOXETINE (FLUOXETINE) [Suspect]
     Indication: PRODUCT USED FOR UNKNOWN INDICATION
  2. PAROXETINE (PAROXETINE) [Suspect]
     Indication: DEPRESSION
     Route: 048
     Dates: start: 20130617, end: 20130627

REACTIONS (11)
  - Panic attack [None]
  - Paraesthesia [None]
  - Nausea [None]
  - Constipation [None]
  - Mania [None]
  - Suicidal ideation [None]
  - Memory impairment [None]
  - Chest discomfort [None]
  - Drug withdrawal syndrome [None]
  - Crying [None]
  - Loss of libido [None]
